FAERS Safety Report 23189589 (Version 1)
Quarter: 2023Q4

REPORT INFORMATION
  Report Type: Spontaneous
  Country: CA (occurrence: CA)
  Receive Date: 20231116
  Receipt Date: 20231116
  Transmission Date: 20240110
  Serious: Yes (Other)
  Sender: FDA-Public Use
  Company Number: CA-TEVA-2022-CA-2051026

PATIENT
  Age: 63 Year
  Sex: Female

DRUGS (1)
  1. TEMOZOLOMIDE [Suspect]
     Active Substance: TEMOZOLOMIDE
     Indication: Chemotherapy
     Route: 065

REACTIONS (6)
  - Aphasia [Unknown]
  - Candida infection [Unknown]
  - Confusional state [Unknown]
  - Dysphagia [Unknown]
  - Mucosal inflammation [Unknown]
  - Pancytopenia [Unknown]
